FAERS Safety Report 6921529-8 (Version None)
Quarter: 2010Q3

REPORT INFORMATION
  Report Type: 
  Country: None (occurrence: None)
  Receive Date: 20100812
  Receipt Date: 20100802
  Transmission Date: 20110219
  Serious: Yes (Hospitalization)
  Sender: FDA-Public Use
  Company Number: PHHY2010US50821

PATIENT
  Sex: Female

DRUGS (9)
  1. EXTAVIA [Suspect]
     Indication: MULTIPLE SCLEROSIS
     Dosage: 0.25 MG, QOD
     Route: 058
     Dates: start: 20100523
  2. METHOCARBAMOL [Concomitant]
     Dosage: 750 MG, TID
  3. FLUOXETINE [Concomitant]
     Dosage: 20 MG, QD
  4. IBUPROFEN [Concomitant]
     Dosage: 600 MG, TID
  5. SLEEP AID [Concomitant]
     Dosage: UNK, PRN
  6. STOOL SOFTENER [Concomitant]
     Dosage: UNK, PRN
  7. IRON SUPPLEMENTS [Concomitant]
     Dosage: 27 MG, QD
  8. METRONIDAZOLE [Concomitant]
     Dosage: 500 MG, BID
  9. CIPROFLOXACIN [Concomitant]
     Dosage: 500 MG, BID

REACTIONS (6)
  - ANAEMIA [None]
  - COLITIS [None]
  - HAEMATOCHEZIA [None]
  - MUSCULAR WEAKNESS [None]
  - PAIN IN EXTREMITY [None]
  - SENSATION OF HEAVINESS [None]
